FAERS Safety Report 18105461 (Version 3)
Quarter: 2021Q1

REPORT INFORMATION
  Report Type: Spontaneous
  Country: US (occurrence: US)
  Receive Date: 20200804
  Receipt Date: 20210302
  Transmission Date: 20210419
  Serious: No
  Sender: FDA-Public Use
  Company Number: US-SA-2020SA199826

PATIENT
  Age: 25 Year
  Sex: Female

DRUGS (3)
  1. CEREZYME [Suspect]
     Active Substance: IMIGLUCERASE
     Indication: GAUCHER^S DISEASE
     Dosage: 4000 U, QW
     Route: 041
     Dates: start: 20131202
  2. CEREZYME [Suspect]
     Active Substance: IMIGLUCERASE
     Dosage: 4000 U, QW
     Route: 041
     Dates: start: 20200217, end: 2020
  3. CEREZYME [Suspect]
     Active Substance: IMIGLUCERASE
     Dosage: 4000 U, QW
     Route: 041
     Dates: start: 2020

REACTIONS (3)
  - Product dose omission issue [Unknown]
  - Exposure during pregnancy [Unknown]
  - Inappropriate schedule of product administration [Unknown]

NARRATIVE: CASE EVENT DATE: 2020
